FAERS Safety Report 4607341-3 (Version None)
Quarter: 2005Q1

REPORT INFORMATION
  Report Type: 
  Country: None (occurrence: None)
  Receive Date: 20050310
  Receipt Date: 19980901
  Transmission Date: 20050727
  Serious: Yes (Death)
  Sender: FDA-Public Use
  Company Number: US014674

PATIENT
  Age: 66 Year
  Sex: Female

DRUGS (3)
  1. MODAFINIL [Suspect]
     Indication: NARCOLEPSY
     Dates: start: 19941123, end: 19950609
  2. PRAGMAREL [Concomitant]
  3. TYROSINE [Concomitant]

REACTIONS (4)
  - COMPLETED SUICIDE [None]
  - GUN SHOT WOUND [None]
  - INTENTIONAL SELF-INJURY [None]
  - MURDER [None]
